FAERS Safety Report 21749059 (Version 2)
Quarter: 2022Q4

REPORT INFORMATION
  Report Type: Report from Study
  Country: CN (occurrence: CN)
  Receive Date: 20221219
  Receipt Date: 20221220
  Transmission Date: 20230112
  Serious: Yes (Hospitalization)
  Sender: FDA-Public Use
  Company Number: CN-PFIZER INC-PV202200122946

PATIENT
  Age: 59 Year
  Sex: Female

DRUGS (45)
  1. PACLITAXEL [Suspect]
     Active Substance: PACLITAXEL
     Indication: Triple negative breast cancer
     Dosage: UNK
     Route: 042
     Dates: start: 20220525, end: 20220525
  2. PACLITAXEL [Suspect]
     Active Substance: PACLITAXEL
     Dosage: UNK
     Route: 042
     Dates: start: 20220601, end: 20220601
  3. PACLITAXEL [Suspect]
     Active Substance: PACLITAXEL
     Dosage: UNK
     Route: 042
     Dates: start: 20220609, end: 20220609
  4. PACLITAXEL [Suspect]
     Active Substance: PACLITAXEL
     Dosage: UNK
     Route: 042
     Dates: start: 20220623, end: 20220623
  5. PACLITAXEL [Suspect]
     Active Substance: PACLITAXEL
     Dosage: UNK
     Route: 042
     Dates: start: 20220630, end: 20220630
  6. PACLITAXEL [Suspect]
     Active Substance: PACLITAXEL
     Dosage: UNK
     Route: 042
     Dates: start: 20220722, end: 20220722
  7. PACLITAXEL [Suspect]
     Active Substance: PACLITAXEL
     Dosage: UNK
     Route: 042
     Dates: start: 20220801, end: 20220801
  8. PACLITAXEL [Suspect]
     Active Substance: PACLITAXEL
     Dosage: UNK
     Dates: start: 20220810, end: 20220810
  9. PACLITAXEL [Suspect]
     Active Substance: PACLITAXEL
     Dosage: UNK
     Route: 042
     Dates: start: 20220823, end: 20220823
  10. PACLITAXEL [Suspect]
     Active Substance: PACLITAXEL
     Dosage: UNK
     Route: 042
     Dates: start: 20220707
  11. PACLITAXEL [Suspect]
     Active Substance: PACLITAXEL
     Dosage: UNK
     Route: 042
     Dates: start: 20220830, end: 20220830
  12. PACLITAXEL [Suspect]
     Active Substance: PACLITAXEL
     Dosage: UNK
     Route: 042
     Dates: start: 20220907, end: 20220907
  13. PACLITAXEL [Suspect]
     Active Substance: PACLITAXEL
     Dosage: UNK
     Route: 042
     Dates: start: 20220920, end: 20220920
  14. PACLITAXEL [Suspect]
     Active Substance: PACLITAXEL
     Dosage: UNK
     Route: 042
     Dates: start: 20220927, end: 20220927
  15. PACLITAXEL [Suspect]
     Active Substance: PACLITAXEL
     Dosage: UNK
     Route: 042
     Dates: start: 20221007, end: 20221007
  16. INVESTIGATIONAL PRODUCT [Suspect]
     Active Substance: INVESTIGATIONAL PRODUCT
     Dosage: UNK UNK, 2X/DAY
     Route: 048
     Dates: start: 20220526, end: 20220529
  17. INVESTIGATIONAL PRODUCT [Suspect]
     Active Substance: INVESTIGATIONAL PRODUCT
     Dosage: UNK, 2X/DAY
     Route: 048
     Dates: start: 20220602, end: 20220805
  18. INVESTIGATIONAL PRODUCT [Suspect]
     Active Substance: INVESTIGATIONAL PRODUCT
     Dosage: UNK UNK, 2X/DAY
     Route: 048
     Dates: start: 20220610, end: 20220610
  19. INVESTIGATIONAL PRODUCT [Suspect]
     Active Substance: INVESTIGATIONAL PRODUCT
     Dosage: UNK UNK, 2X/DAY
     Route: 048
     Dates: start: 20220611, end: 20220611
  20. INVESTIGATIONAL PRODUCT [Suspect]
     Active Substance: INVESTIGATIONAL PRODUCT
     Dosage: UNK UNK, 2X/DAY
     Route: 048
     Dates: start: 20220612, end: 20220613
  21. INVESTIGATIONAL PRODUCT [Suspect]
     Active Substance: INVESTIGATIONAL PRODUCT
     Dosage: UNK, 2X/DAY
     Route: 048
     Dates: start: 20220624, end: 20220627
  22. INVESTIGATIONAL PRODUCT [Suspect]
     Active Substance: INVESTIGATIONAL PRODUCT
     Dosage: UNK UNK, 2X/DAY
     Route: 048
     Dates: start: 20220701, end: 20220701
  23. INVESTIGATIONAL PRODUCT [Suspect]
     Active Substance: INVESTIGATIONAL PRODUCT
     Dosage: UNK UNK, 2X/DAY
     Route: 048
     Dates: start: 20220702, end: 20220704
  24. INVESTIGATIONAL PRODUCT [Suspect]
     Active Substance: INVESTIGATIONAL PRODUCT
     Dosage: UNK UNK, 2X/DAY
     Route: 048
     Dates: start: 20220709, end: 20220712
  25. INVESTIGATIONAL PRODUCT [Suspect]
     Active Substance: INVESTIGATIONAL PRODUCT
     Dosage: UNK UNK, 2X/DAY
     Route: 048
     Dates: start: 20220723, end: 20220726
  26. INVESTIGATIONAL PRODUCT [Suspect]
     Active Substance: INVESTIGATIONAL PRODUCT
     Dosage: UNK UNK, 2X/DAY
     Route: 048
     Dates: start: 20220802, end: 20220805
  27. INVESTIGATIONAL PRODUCT [Suspect]
     Active Substance: INVESTIGATIONAL PRODUCT
     Dosage: UNK UNK, 2X/DAY
     Route: 048
     Dates: start: 20220811, end: 20220814
  28. INVESTIGATIONAL PRODUCT [Suspect]
     Active Substance: INVESTIGATIONAL PRODUCT
     Dosage: UNK UNK, 2X/DAY
     Route: 048
     Dates: start: 20220824, end: 20220827
  29. INVESTIGATIONAL PRODUCT [Suspect]
     Active Substance: INVESTIGATIONAL PRODUCT
     Dosage: UNK UNK, 2X/DAY
     Route: 048
     Dates: start: 20220831, end: 20220903
  30. INVESTIGATIONAL PRODUCT [Suspect]
     Active Substance: INVESTIGATIONAL PRODUCT
     Dosage: UNK UNK, 2X/DAY
     Route: 048
     Dates: start: 20220908, end: 20220911
  31. INVESTIGATIONAL PRODUCT [Suspect]
     Active Substance: INVESTIGATIONAL PRODUCT
     Dosage: UNK UNK, 2X/DAY
     Dates: start: 20220921, end: 20220924
  32. INVESTIGATIONAL PRODUCT [Suspect]
     Active Substance: INVESTIGATIONAL PRODUCT
     Dosage: UNK, 2X/DAY
     Route: 048
     Dates: start: 20220928, end: 20221001
  33. GLUTATHIONE [Concomitant]
     Active Substance: GLUTATHIONE
     Indication: Prophylaxis
     Dosage: 1.8 G, ONCE
     Route: 042
     Dates: start: 20220807, end: 20220807
  34. MAGNESIUM ISOGLYCYRRHIZINATE [Concomitant]
     Active Substance: MAGNESIUM ISOGLYCYRRHIZINATE
     Indication: Prophylaxis
     Dosage: 200 MG, ONCE
     Route: 042
     Dates: start: 20220807, end: 20220807
  35. PROMETHAZINE HYDROCHLORIDE [Concomitant]
     Active Substance: PROMETHAZINE HYDROCHLORIDE
     Indication: Chemotherapy
     Dosage: 25 MG, ONCE
     Route: 030
     Dates: start: 20220808, end: 20220808
  36. DEXAMETHASONE SODIUM PHOSPHATE [Concomitant]
     Active Substance: DEXAMETHASONE SODIUM PHOSPHATE
     Indication: Chemotherapy
     Dosage: 5 MG, ONCE
     Route: 042
     Dates: start: 20220808, end: 20220808
  37. PALONOSETRON HYDROCHLORIDE [Concomitant]
     Active Substance: PALONOSETRON HYDROCHLORIDE
     Indication: Chemotherapy
     Dosage: 25 MG, ONCE
     Route: 042
     Dates: start: 20220808, end: 20220808
  38. IPRATROPIUM BROMIDE [Concomitant]
     Active Substance: IPRATROPIUM BROMIDE
     Indication: Chemotherapy
     Dosage: 5 MG, ONCE
     Route: 055
     Dates: start: 20220810, end: 20220811
  39. BUDESONIDE [Concomitant]
     Active Substance: BUDESONIDE
     Indication: Chemotherapy
     Dosage: 1 MG, ONCE
     Route: 042
     Dates: start: 20220810, end: 20220811
  40. DICYCLOMINE [Concomitant]
     Active Substance: DICYCLOMINE HYDROCHLORIDE
     Indication: Prophylaxis
     Dosage: 1 DF, 3X/DAY
     Route: 048
     Dates: start: 20220811
  41. LOPERAMIDE [Concomitant]
     Active Substance: LOPERAMIDE
     Indication: Mouth ulceration
     Dosage: 10 ML, 3X/DAY
     Route: 061
     Dates: start: 20220831
  42. IPRATROPIUM BROMIDE [Concomitant]
     Active Substance: IPRATROPIUM BROMIDE
     Indication: Productive cough
     Dosage: 5 MG, DAILY
     Route: 055
     Dates: start: 20220810, end: 20220811
  43. CETYLPYRIDINIUM CHLORIDE [Concomitant]
     Active Substance: CETYLPYRIDINIUM CHLORIDE
     Indication: Aphthous ulcer
     Dosage: 10 MG, 3X/DAY
     Route: 048
     Dates: start: 20220831
  44. DICLOFENAC DIETHYLAMINE [Concomitant]
     Active Substance: DICLOFENAC DIETHYLAMINE
     Indication: Prophylaxis
     Dosage: 1 DF, 3X/DAY
     Route: 048
     Dates: start: 20220811, end: 20220901
  45. BUDESONIDE [Concomitant]
     Active Substance: BUDESONIDE
     Indication: Productive cough
     Dosage: 1 MG, DAILY
     Route: 055
     Dates: start: 20220810, end: 20220811

REACTIONS (1)
  - Dyspepsia [Recovered/Resolved]

NARRATIVE: CASE EVENT DATE: 20220905
